FAERS Safety Report 17031932 (Version 3)
Quarter: 2019Q4

REPORT INFORMATION
  Report Type: Report from Study
  Country: TW (occurrence: TW)
  Receive Date: 20191114
  Receipt Date: 20191211
  Transmission Date: 20200122
  Serious: Yes (Hospitalization)
  Sender: FDA-Public Use
  Company Number: TW-REGENERON PHARMACEUTICALS, INC.-2019-64467

PATIENT

DRUGS (2)
  1. EYLEA [Suspect]
     Active Substance: AFLIBERCEPT
     Indication: EFFUSION
     Dosage: 0.05 ML, ONCE, LEFT EYE
     Route: 031
     Dates: start: 20191128
  2. EYLEA [Suspect]
     Active Substance: AFLIBERCEPT
     Indication: DIABETIC RETINAL OEDEMA
     Dosage: 0.05 ML, ONCE, LEFT EYE
     Route: 031
     Dates: start: 20191025, end: 20191025

REACTIONS (2)
  - Macular degeneration [Unknown]
  - Eye oedema [Unknown]

NARRATIVE: CASE EVENT DATE: 20191024
